FAERS Safety Report 14565602 (Version 3)
Quarter: 2018Q1

REPORT INFORMATION
  Report Type: Report from Study
  Country: CA (occurrence: CA)
  Receive Date: 20180223
  Receipt Date: 20180328
  Transmission Date: 20180509
  Serious: Yes (Other)
  Sender: FDA-Public Use
  Company Number: CA-ORION CORPORATION ORION PHARMA-TREX2018-0512

PATIENT
  Age: 37 Year
  Sex: Male

DRUGS (9)
  1. DOVOBET [Concomitant]
     Active Substance: BETAMETHASONE\CALCIPOTRIENE
     Route: 065
  2. METHOTREXATE (TRADE NAME UNKNOWN) [Suspect]
     Active Substance: METHOTREXATE
     Dosage: STRENGTH: 2.5 MG
     Route: 048
     Dates: start: 20140707, end: 201709
  3. ENBREL [Suspect]
     Active Substance: ETANERCEPT
     Route: 058
  4. ARAVA [Concomitant]
     Active Substance: LEFLUNOMIDE
     Route: 065
  5. FISH OIL [Concomitant]
     Active Substance: FISH OIL
     Route: 065
  6. ENBREL [Suspect]
     Active Substance: ETANERCEPT
     Route: 058
  7. ENBREL [Suspect]
     Active Substance: ETANERCEPT
     Indication: PSORIATIC ARTHROPATHY
     Route: 065
     Dates: start: 20140322
  8. CLOMID [Concomitant]
     Active Substance: CLOMIPHENE CITRATE
     Route: 065
  9. CELEBREX [Concomitant]
     Active Substance: CELECOXIB
     Route: 065

REACTIONS (12)
  - Synovitis [Unknown]
  - Arthritis [Unknown]
  - Sacroiliitis [Unknown]
  - Osteitis [Unknown]
  - Spondyloarthropathy [Unknown]
  - Tendon pain [Unknown]
  - Ankylosing spondylitis [Unknown]
  - Joint range of motion decreased [Unknown]
  - Tenosynovitis [Unknown]
  - Extremity contracture [Unknown]
  - Pain in extremity [Unknown]
  - Osteopenia [Unknown]
